FAERS Safety Report 8265437 (Version 4)
Quarter: 2018Q4

REPORT INFORMATION
  Report Type: Report from Study
  Country: US (occurrence: US)
  Receive Date: 20111128
  Receipt Date: 20181122
  Transmission Date: 20190205
  Serious: Yes (Death, Hospitalization, Other)
  Sender: FDA-Public Use
  Company Number: US-TEVA-310797USA

PATIENT
  Age: 53 Year
  Sex: Male

DRUGS (8)
  1. PROPRANOLOL [Suspect]
     Active Substance: PROPRANOLOL HYDROCHLORIDE
     Route: 048
  2. OLMESARTAN MEDOXOMIL. [Concomitant]
     Active Substance: OLMESARTAN MEDOXOMIL
  3. INSULIN [Interacting]
     Active Substance: INSULIN NOS
     Route: 065
  4. FAT EMULSION NOS [Interacting]
     Active Substance: EGG PHOSPHOLIPIDS\SAFFLOWER OIL\SOYBEAN OIL
     Route: 065
  5. WARFARIN [Suspect]
     Active Substance: WARFARIN
     Route: 048
  6. LORAZEPAM. [Concomitant]
     Active Substance: LORAZEPAM
  7. DILTIAZEM. [Suspect]
     Active Substance: DILTIAZEM
     Route: 048
  8. FLUOXETINE [Concomitant]
     Active Substance: FLUOXETINE HYDROCHLORIDE

REACTIONS (7)
  - Cardiogenic shock [Fatal]
  - Multiple organ dysfunction syndrome [Fatal]
  - Toxicity to various agents [Fatal]
  - Respiratory failure [Unknown]
  - Cardiac arrest [Fatal]
  - Overdose [Fatal]
  - Drug interaction [Unknown]

NARRATIVE: CASE EVENT DATE: 2011
